FAERS Safety Report 8131354-0 (Version None)
Quarter: 2012Q1

REPORT INFORMATION
  Report Type: 
  Country: None (occurrence: None)
  Receive Date: 20120210
  Receipt Date: 20120210
  Transmission Date: 20120608
  Serious: Yes (Hospitalization)
  Sender: FDA-Public Use
  Company Number: None

PATIENT
  Age: 84 Year
  Sex: Male
  Weight: 70 kg

DRUGS (1)
  1. AMIODARONE HCL [Suspect]
     Indication: ATRIAL FIBRILLATION
     Dosage: 100 MG EVERY DAY PO
     Route: 048
     Dates: start: 20110223, end: 20111205

REACTIONS (9)
  - MEMORY IMPAIRMENT [None]
  - HYPOTENSION [None]
  - BRADYCARDIA [None]
  - FEELING COLD [None]
  - YELLOW SKIN [None]
  - DIZZINESS [None]
  - ASTHENIA [None]
  - HYPOTHYROIDISM [None]
  - FATIGUE [None]
